FAERS Safety Report 6487599-9 (Version None)
Quarter: 2009Q4

REPORT INFORMATION
  Report Type: 
  Country: None (occurrence: None)
  Receive Date: 20091210
  Receipt Date: 20090821
  Transmission Date: 20100525
  Serious: No
  Sender: FDA-Public Use
  Company Number: US-AMGEN-KDL361249

PATIENT
  Sex: Male

DRUGS (2)
  1. ENBREL [Suspect]
     Indication: PSORIASIS
     Route: 058
     Dates: start: 20051011
  2. METHOTREXATE [Concomitant]

REACTIONS (4)
  - DIZZINESS [None]
  - LIVER FUNCTION TEST ABNORMAL [None]
  - NERVE COMPRESSION [None]
  - WEIGHT INCREASED [None]
